FAERS Safety Report 8765996 (Version 2)
Quarter: 2013Q4

REPORT INFORMATION
  Report Type: Spontaneous
  Country: US (occurrence: US)
  Receive Date: 20120904
  Receipt Date: 20131105
  Transmission Date: 20140711
  Serious: Yes (Other)
  Sender: FDA-Public Use
  Company Number: US-009507513-1208USA010944

PATIENT
  Age: 53 Year
  Sex: Male

DRUGS (3)
  1. TEMODAR [Suspect]
     Indication: NEOPLASM MALIGNANT
     Dosage: MG, 5XW
     Route: 048
     Dates: start: 20120507, end: 20120511
  2. TEMODAR [Suspect]
     Dosage: MG, 5XW
     Route: 048
     Dates: start: 20120609, end: 20120613
  3. TEMODAR [Suspect]
     Dosage: MG, 5XW
     Route: 048
     Dates: end: 20120822

REACTIONS (1)
  - Brain neoplasm malignant [Not Recovered/Not Resolved]
